FAERS Safety Report 5038308-1 (Version None)
Quarter: 2006Q2

REPORT INFORMATION
  Report Type: 
  Country: None (occurrence: None)
  Receive Date: 20060629
  Receipt Date: 20060623
  Transmission Date: 20061013
  Serious: Yes (Other)
  Sender: FDA-Public Use
  Company Number: PHBS2006CN09466

PATIENT
  Age: 71 Year
  Sex: Female

DRUGS (2)
  1. MIACALCIN [Suspect]
     Indication: OSTEOPOROSIS
     Dosage: 50 IU, QD
     Route: 030
     Dates: start: 20060508
  2. MIACALCIN [Suspect]
     Dosage: 50 IU, QOD
     Route: 030
     Dates: end: 20060610

REACTIONS (3)
  - FLUSHING [None]
  - PAIN [None]
  - PRURITUS [None]
